FAERS Safety Report 23843521 (Version 2)
Quarter: 2024Q2

REPORT INFORMATION
  Report Type: Report from Study
  Country: BR (occurrence: BR)
  Receive Date: 20240510
  Receipt Date: 20240531
  Transmission Date: 20240716
  Serious: Yes (Other)
  Sender: FDA-Public Use
  Company Number: BR-BAYER-2024A039211

PATIENT
  Sex: Female

DRUGS (7)
  1. NEXAVAR [Suspect]
     Active Substance: SORAFENIB
     Indication: Thyroid cancer metastatic
     Dosage: 400 MG, QD
     Dates: start: 20240226
  2. NEXAVAR [Suspect]
     Active Substance: SORAFENIB
     Indication: Metastases to lung
  3. CALCIUM [Concomitant]
     Active Substance: CALCIUM
     Dosage: TAKES 3 TABLETS A DAY
  4. CALCITRIOL [Concomitant]
     Active Substance: CALCITRIOL
     Indication: Supplementation therapy
     Dosage: TAKES 2 TABLETS A DAY
  5. PURAN [Concomitant]
     Active Substance: LEVOTHYROXINE SODIUM
     Dosage: TAKES 1 TABLET A DAY
  6. CECI [Concomitant]
     Indication: Contraception
     Dosage: TAKES 1 TABLET A DAY
  7. COMBIRON [ASCORBIC ACID;CALCIUM PANTOTHENATE;CYANOCOBALAMIN;FERROU [Concomitant]
     Indication: Supplementation therapy
     Dosage: TAKE 1 TABLET IN THE MORNING

REACTIONS (25)
  - Immunodeficiency [Recovering/Resolving]
  - Emergency care [None]
  - Pruritus [Recovered/Resolved]
  - Rash macular [Recovering/Resolving]
  - Diarrhoea [Recovering/Resolving]
  - Eructation [Recovering/Resolving]
  - Pain [Recovering/Resolving]
  - Flatulence [Recovering/Resolving]
  - Dermatitis [Recovering/Resolving]
  - Bone pain [Recovering/Resolving]
  - Pyrexia [Recovering/Resolving]
  - Blister [Recovered/Resolved]
  - Swelling face [Recovering/Resolving]
  - Erythema [Recovering/Resolving]
  - Skin warm [Recovering/Resolving]
  - Ear discomfort [Recovering/Resolving]
  - Tongue discomfort [Recovering/Resolving]
  - Off label use [None]
  - Abdominal pain [Recovering/Resolving]
  - Gait disturbance [Recovering/Resolving]
  - Peripheral swelling [Recovering/Resolving]
  - Rash [Recovering/Resolving]
  - Alopecia [Recovering/Resolving]
  - Loss of personal independence in daily activities [Recovering/Resolving]
  - Therapeutic response unexpected [Recovering/Resolving]

NARRATIVE: CASE EVENT DATE: 20240226
